FAERS Safety Report 8948254 (Version 1)
Quarter: 2012Q4

REPORT INFORMATION
  Report Type: 
  Country: DE (occurrence: DE)
  Receive Date: 20121121
  Receipt Date: 20121121
  Transmission Date: 20130627
  Serious: No
  Sender: FDA-Public Use
  Company Number: DE-ASTELLAS-1100988

PATIENT
  Sex: Female

DRUGS (1)
  1. ROACTEMRA [Suspect]
     Indication: RHEUMATOID ARTHRITIS
     Dosage: Last dose prior to event given on 18/jul/2012.
     Route: 065

REACTIONS (1)
  - Fluid retention [Not Recovered/Not Resolved]
